FAERS Safety Report 4802923-8 (Version None)
Quarter: 2005Q4

REPORT INFORMATION
  Report Type: 
  Country: None (occurrence: None)
  Receive Date: 20051019
  Receipt Date: 20050824
  Transmission Date: 20060501
  Serious: Yes (Other)
  Sender: FDA-Public Use
  Company Number: 200517497GDDC

PATIENT
  Age: 58 Year
  Sex: Male
  Weight: 81.27 kg

DRUGS (9)
  1. DOCETAXEL [Suspect]
     Indication: PROSTATE CANCER
     Route: 042
     Dates: start: 20050425, end: 20050804
  2. CAPECITABINE [Suspect]
     Indication: PROSTATE CANCER
     Route: 048
     Dates: start: 20050429
  3. LOPID [Suspect]
     Indication: HYPERLIPIDAEMIA
     Route: 048
     Dates: end: 20050801
  4. VICODIN [Concomitant]
     Dates: start: 20010101
  5. COMPAZINE [Concomitant]
  6. ZESTORETIC [Concomitant]
  7. GLUCOVANCE [Concomitant]
  8. AVANDIA [Concomitant]
  9. VIAGRA [Concomitant]
     Dates: start: 20010101

REACTIONS (2)
  - LIMB DISCOMFORT [None]
  - MYOSITIS [None]
